FAERS Safety Report 12578550 (Version 2)
Quarter: 2016Q3

REPORT INFORMATION
  Report Type: Report from Study
  Country: US (occurrence: US)
  Receive Date: 20160721
  Receipt Date: 20160809
  Transmission Date: 20161109
  Serious: Yes (Other)
  Sender: FDA-Public Use
  Company Number: US-ROCHE-1797655

PATIENT
  Age: 61 Year
  Sex: Male
  Weight: 100.4 kg

DRUGS (1)
  1. RO 4929097 (GAMMA SECRETASE INHIBITOR) [Suspect]
     Active Substance: INVESTIGATIONAL PRODUCT
     Indication: SARCOMA METASTATIC
     Route: 065
     Dates: start: 20110512, end: 20110630

REACTIONS (5)
  - Hypophosphataemia [Unknown]
  - Lymphocyte count decreased [Unknown]
  - Hypocalcaemia [Unknown]
  - Lymphocyte count decreased [Unknown]
  - Small intestinal obstruction [Unknown]

NARRATIVE: CASE EVENT DATE: 20110804
